FAERS Safety Report 6816149-X (Version None)
Quarter: 2010Q3

REPORT INFORMATION
  Report Type: 
  Country: None (occurrence: None)
  Receive Date: 20100705
  Receipt Date: 20100621
  Transmission Date: 20110219
  Serious: Yes (Other)
  Sender: FDA-Public Use
  Company Number: US-ELI_LILLY_AND_COMPANY-US201006005760

PATIENT
  Sex: Female
  Weight: 63.492 kg

DRUGS (3)
  1. EVISTA [Suspect]
     Indication: HORMONE REPLACEMENT THERAPY
     Dates: start: 20070201, end: 20070501
  2. PREMARIN [Concomitant]
     Indication: HORMONE REPLACEMENT THERAPY
     Dosage: 0.3 MG, DAILY (1/D)
  3. PROGESTERONE [Concomitant]
     Dosage: 200 MG, UNKNOWN

REACTIONS (4)
  - DERMATITIS CONTACT [None]
  - DIVERTICULITIS [None]
  - ENDOMETRIAL CANCER [None]
  - ENDOMETRIAL NEOPLASM [None]
